FAERS Safety Report 8163760 (Version 3)
Quarter: 2012Q4

REPORT INFORMATION
  Report Type: 
  Country: US (occurrence: US)
  Receive Date: 20110930
  Receipt Date: 20120924
  Transmission Date: 20130627
  Serious: Yes (Other)
  Sender: FDA-Public Use
  Company Number: US-ASTRAZENECA-2011SE39731

PATIENT
  Age: 60 Year
  Sex: Female

DRUGS (3)
  1. ARIMIDEX [Suspect]
     Route: 048
     Dates: start: 200908
  2. BLOOD PRESSURE MEDICATION [Concomitant]
  3. DEPRESSION MEDICATION [Concomitant]

REACTIONS (8)
  - Breast cancer [Unknown]
  - Malaise [Unknown]
  - Tremor [Unknown]
  - Feeling abnormal [Unknown]
  - Impaired work ability [Unknown]
  - Limb injury [Unknown]
  - Memory impairment [Unknown]
  - Drug dose omission [Unknown]
